FAERS Safety Report 10401803 (Version 1)
Quarter: 2014Q3

REPORT INFORMATION
  Report Type: Spontaneous
  Country: US (occurrence: None)
  Receive Date: 20140819
  Receipt Date: 20140819
  Transmission Date: 20150326
  Serious: Yes (Other)
  Sender: FDA-Public Use
  Company Number: None

PATIENT
  Age: 50 Year
  Sex: Female
  Weight: 69.85 kg

DRUGS (1)
  1. LEVOTHYROXINE [Suspect]
     Active Substance: LEVOTHYROXINE
     Indication: HYPOTHYROIDISM
     Dosage: 1X 1 ONCE DAILY TAKEN BY MOUTH
     Route: 048
     Dates: start: 20140228, end: 20140815

REACTIONS (4)
  - Pain in extremity [None]
  - Arthralgia [None]
  - Gait disturbance [None]
  - Neck pain [None]

NARRATIVE: CASE EVENT DATE: 20140416
